FAERS Safety Report 4296081-9 (Version None)
Quarter: 2004Q1

REPORT INFORMATION
  Report Type: 
  Country: None (occurrence: None)
  Receive Date: 20040212
  Receipt Date: 20040202
  Transmission Date: 20041129
  Serious: Yes (Life-Threatening)
  Sender: FDA-Public Use
  Company Number: HQWYE789702FEB04

PATIENT
  Age: 28 Year
  Sex: Female

DRUGS (1)
  1. NORGESTREL AND ETHINYL ESTRADIOL [Suspect]
     Indication: ORAL CONTRACEPTION
     Dosage: 1 TABLET DAILY, ORAL
     Route: 048
     Dates: start: 19990101, end: 20040123

REACTIONS (6)
  - ALANINE AMINOTRANSFERASE INCREASED [None]
  - ASPARTATE AMINOTRANSFERASE INCREASED [None]
  - DISSEMINATED INTRAVASCULAR COAGULATION [None]
  - HEPATIC FUNCTION ABNORMAL [None]
  - PYREXIA [None]
  - WHITE BLOOD CELL COUNT DECREASED [None]
